FAERS Safety Report 6984145 (Version 3)
Quarter: 2014Q2

REPORT INFORMATION
  Report Type: Spontaneous
  Country: US (occurrence: US)
  Receive Date: 20090501
  Receipt Date: 20140409
  Transmission Date: 20141212
  Serious: Yes (Hospitalization)
  Sender: FDA-Public Use
  Company Number: US-ALEXION-A200700056

PATIENT
  Age: 23 Year
  Sex: Male
  Weight: 77 kg

DRUGS (19)
  1. SOLIRIS [Suspect]
     Indication: PAROXYSMAL NOCTURNAL HAEMOGLOBINURIA
     Dosage: 600 MG, SINGLE
     Route: 042
     Dates: start: 20070713, end: 20070713
  2. SOLIRIS [Suspect]
     Dosage: 600 MG, SINGLE
     Route: 042
     Dates: start: 20070720, end: 20070720
  3. SOLIRIS [Suspect]
     Dosage: 600 MG, SINGLE
     Route: 042
     Dates: start: 20070727, end: 20070727
  4. SOLIRIS [Suspect]
     Dosage: 600 MG, SINGLE
     Route: 042
     Dates: start: 20070803, end: 20070803
  5. SOLIRIS [Suspect]
     Dosage: 900 MG, SINGLE
     Route: 042
     Dates: start: 20070810, end: 20070810
  6. SOLIRIS [Suspect]
     Dosage: 900 MG, SINGLE
     Route: 042
     Dates: start: 20070827, end: 20070827
  7. SOLIRIS [Suspect]
     Dosage: 900 MG, SINGLE
     Route: 042
     Dates: start: 20070921, end: 20070921
  8. SOLIRIS [Suspect]
     Dosage: 900 MG, SINGLE
     Route: 042
     Dates: start: 20071015, end: 20071015
  9. SOLIRIS [Suspect]
     Dosage: 900 MG, SINGLE
     Route: 042
     Dates: start: 20071030, end: 20071030
  10. SOLIRIS [Suspect]
     Dosage: 900 MG, SINGLE
     Route: 042
     Dates: start: 20071113, end: 20071113
  11. SOLIRIS [Suspect]
     Dosage: 900 MG, SINGLE
     Route: 042
     Dates: start: 20071207, end: 20071207
  12. COUMADIN [Concomitant]
     Dosage: 5 MG, UNK
  13. FOLIC ACID [Concomitant]
     Dosage: 1 MG, UNK
  14. LOTREL /01289101/ [Concomitant]
     Dosage: 10/40 MG
  15. NEXIUM [Concomitant]
     Dosage: 40 MG, UNK
  16. OXYCODONE [Concomitant]
     Dosage: 5 MG, UNK
  17. ZOCOR [Concomitant]
     Dosage: 40 MG, UNK
  18. INSULIN [Concomitant]
     Indication: TYPE 1 DIABETES MELLITUS
  19. CYCLOSPORINE [Concomitant]
     Indication: PANCYTOPENIA
     Dosage: 75 MG, QD

REACTIONS (11)
  - Pseudomonas infection [Recovered/Resolved]
  - Sepsis [Unknown]
  - Infection [Unknown]
  - Febrile neutropenia [Recovered/Resolved]
  - Haemoglobin decreased [Unknown]
  - Haemolytic anaemia [Unknown]
  - Abdominal pain [Recovered/Resolved]
  - Nausea [Recovered/Resolved]
  - Vomiting [Recovered/Resolved]
  - Pyrexia [Unknown]
  - Laboratory test abnormal [Not Recovered/Not Resolved]
